FAERS Safety Report 10971237 (Version 2)
Quarter: 2015Q2

REPORT INFORMATION
  Report Type: Spontaneous
  Country: US (occurrence: US)
  Receive Date: 20150331
  Receipt Date: 20150408
  Transmission Date: 20150821
  Serious: Yes (Hospitalization, Other)
  Sender: FDA-Public Use
  Company Number: US-BAYER-2015-067250

PATIENT
  Age: 28 Year
  Sex: Female
  Weight: 47 kg

DRUGS (4)
  1. YAZ [Suspect]
     Active Substance: DROSPIRENONE\ETHINYL ESTRADIOL
     Dosage: UNK
     Dates: start: 200909, end: 20140328
  2. VITAMIN D [Concomitant]
     Active Substance: CHOLECALCIFEROL
  3. PREDNISONE. [Concomitant]
     Active Substance: PREDNISONE
     Dosage: 15 MG, QD
  4. CALCIUM [Concomitant]
     Active Substance: CALCIUM

REACTIONS (10)
  - Emotional distress [None]
  - Pain [None]
  - Injury [None]
  - Cerebrovascular accident [None]
  - Motor dysfunction [None]
  - Superior sagittal sinus thrombosis [Recovered/Resolved]
  - Pulmonary embolism [None]
  - Thrombosis [None]
  - Cognitive disorder [None]
  - Deep vein thrombosis [None]

NARRATIVE: CASE EVENT DATE: 20140328
